FAERS Safety Report 23507739 (Version 1)
Quarter: 2024Q1

REPORT INFORMATION
  Report Type: Spontaneous
  Country: US (occurrence: US)
  Receive Date: 20240209
  Receipt Date: 20240209
  Transmission Date: 20240410
  Serious: Yes (Other)
  Sender: FDA-Public Use
  Company Number: US-PFIZER INC-202400035933

PATIENT
  Age: 53 Year
  Sex: Male

DRUGS (1)
  1. XELJANZ [Suspect]
     Active Substance: TOFACITINIB CITRATE
     Dosage: 5MG TWICE PER DAY ORALLY
     Route: 048
     Dates: start: 2019

REACTIONS (6)
  - Basal cell carcinoma [Recovering/Resolving]
  - Arthritis [Recovering/Resolving]
  - Muscle spasms [Recovering/Resolving]
  - Haemorrhage [Recovering/Resolving]
  - Condition aggravated [Recovering/Resolving]
  - COVID-19 [Recovering/Resolving]
